FAERS Safety Report 20206485 (Version 1)
Quarter: 2021Q4

REPORT INFORMATION
  Report Type: Spontaneous
  Country: US (occurrence: None)
  Receive Date: 20211218
  Receipt Date: 20211218
  Transmission Date: 20220303
  Serious: Yes (Disabling)
  Sender: FDA-Public Use
  Company Number: None

PATIENT
  Age: 39 Year
  Sex: Female
  Weight: 81 kg

DRUGS (1)
  1. BUPROPION [Suspect]
     Active Substance: BUPROPION
     Indication: Anxiety
     Dosage: OTHER QUANTITY : 3 TABLET(S);?
     Route: 048
     Dates: start: 20211025, end: 20211203

REACTIONS (3)
  - Product odour abnormal [None]
  - Product formulation issue [None]
  - Drug ineffective [None]

NARRATIVE: CASE EVENT DATE: 20211020
